FAERS Safety Report 4878551-5 (Version None)
Quarter: 2006Q1

REPORT INFORMATION
  Report Type: 
  Country: None (occurrence: None)
  Receive Date: 20060110
  Receipt Date: 20051227
  Transmission Date: 20060701
  Serious: Yes (Other)
  Sender: FDA-Public Use
  Company Number: 220723

PATIENT
  Age: 22 Year
  Sex: Female

DRUGS (1)
  1. RITUXAN [Suspect]
     Indication: ANAEMIA HAEMOLYTIC AUTOIMMUNE
     Dosage: 1 WEEK
     Dates: start: 20040701, end: 20040701

REACTIONS (1)
  - LUNG NEOPLASM [None]
